FAERS Safety Report 11755724 (Version 1)
Quarter: 2015Q4

REPORT INFORMATION
  Report Type: Spontaneous
  Country: US (occurrence: US)
  Receive Date: 20151119
  Receipt Date: 20151119
  Transmission Date: 20160304
  Serious: Yes (Hospitalization)
  Sender: FDA-Public Use
  Company Number: US-ELI_LILLY_AND_COMPANY-US201511003127

PATIENT
  Sex: Female

DRUGS (3)
  1. HUMALOG [Suspect]
     Active Substance: INSULIN LISPRO
     Indication: TYPE 1 DIABETES MELLITUS
     Route: 058
  2. HUMALOG [Suspect]
     Active Substance: INSULIN LISPRO
     Indication: TYPE 1 DIABETES MELLITUS
     Route: 065
  3. ZEGERD [Concomitant]

REACTIONS (6)
  - Dysphonia [Unknown]
  - Blood glucose increased [Unknown]
  - Cholelithiasis [Unknown]
  - Gastrooesophageal reflux disease [Unknown]
  - Diabetes mellitus inadequate control [Unknown]
  - Blood glucose decreased [Unknown]
